FAERS Safety Report 12321164 (Version 1)
Quarter: 2016Q2

REPORT INFORMATION
  Report Type: Spontaneous
  Country: FR (occurrence: FR)
  Receive Date: 20160502
  Receipt Date: 20160502
  Transmission Date: 20160815
  Serious: Yes (Life-Threatening, Hospitalization)
  Sender: FDA-Public Use
  Company Number: FR-ACCORD-040128

PATIENT
  Age: 76 Year
  Sex: Male

DRUGS (12)
  1. OSLIF BREEZHALER [Concomitant]
     Active Substance: INDACATEROL
  2. CARBOPLATIN HOSPIRA [Suspect]
     Active Substance: CARBOPLATIN
     Indication: OROPHARYNGEAL CANCER
     Dosage: 10 MG/ML SOLUTION INJECTABLE POUR PERFUSION)
     Route: 042
     Dates: start: 20160119, end: 20160119
  3. COUMADINE [Concomitant]
     Active Substance: WARFARIN SODIUM
  4. KERLONE [Concomitant]
     Active Substance: BETAXOLOL HYDROCHLORIDE
  5. PRAVASTATIN [Concomitant]
     Active Substance: PRAVASTATIN\PRAVASTATIN SODIUM
  6. KARDEGIC [Concomitant]
     Active Substance: ASPIRIN LYSINE
     Dates: start: 20160219
  7. ACTISKENAN [Concomitant]
     Active Substance: MORPHINE SULFATE
  8. FLUOROURACIL ACCORD [Suspect]
     Active Substance: FLUOROURACIL
     Indication: OROPHARYNGEAL CANCER
     Dosage: 50 MG/ML, SOLUTION POUR PERFUSION
     Route: 042
     Dates: start: 20160219, end: 20160219
  9. IPRATROPIUM [Concomitant]
     Active Substance: IPRATROPIUM
  10. DEXAMETHASONE MERCK [Suspect]
     Active Substance: DEXAMETHASONE
     Indication: OROPHARYNGEAL CANCER
     Route: 042
     Dates: start: 20160219, end: 20160219
  11. RAMIPRIL. [Concomitant]
     Active Substance: RAMIPRIL
  12. SPIRIVA [Concomitant]
     Active Substance: TIOTROPIUM BROMIDE MONOHYDRATE

REACTIONS (7)
  - Agranulocytosis [Recovered/Resolved]
  - Oesophagitis [Unknown]
  - Anaemia [Unknown]
  - Mucosal inflammation [Not Recovered/Not Resolved]
  - Leukopenia [Recovered/Resolved]
  - Thrombocytopenia [Recovered/Resolved]
  - Renal infarct [Unknown]

NARRATIVE: CASE EVENT DATE: 20160223
